FAERS Safety Report 24646892 (Version 1)
Quarter: 2024Q4

REPORT INFORMATION
  Report Type: Other
  Country: US (occurrence: US)
  Receive Date: 20241121
  Receipt Date: 20241121
  Transmission Date: 20250114
  Serious: No
  Sender: NOVA LABORATORIES LIMITED
  Company Number: US-Nova Laboratories Limited-2165545

PATIENT
  Age: 62 Year
  Sex: Female

DRUGS (2)
  1. PURIXAN [Suspect]
     Active Substance: MERCAPTOPURINE
     Indication: Crohn^s disease
  2. SULFASALAZINE [Concomitant]
     Active Substance: SULFASALAZINE

REACTIONS (1)
  - Off label use [Unknown]
